FAERS Safety Report 8501610-2 (Version None)
Quarter: 2012Q3

REPORT INFORMATION
  Report Type: 
  Country: None (occurrence: None)
  Receive Date: 20120710
  Receipt Date: 20120706
  Transmission Date: 20120928
  Serious: Yes (Other)
  Sender: FDA-Public Use
  Company Number: US-TEVA-347170USA

PATIENT
  Sex: Female
  Weight: 98.972 kg

DRUGS (2)
  1. PLAN B ONE-STEP [Suspect]
     Indication: POST COITAL CONTRACEPTION
     Dosage: 1.5 MILLIGRAM;
     Route: 048
     Dates: start: 20100805, end: 20100805
  2. BLOOD PRESSURE MEDICATION [Concomitant]
     Indication: HYPERTENSION

REACTIONS (4)
  - VAGINAL HAEMORRHAGE [None]
  - OFF LABEL USE [None]
  - PRE-ECLAMPSIA [None]
  - PREGNANCY [None]
